FAERS Safety Report 6297278-9 (Version None)
Quarter: 2009Q3

REPORT INFORMATION
  Report Type: 
  Country: None (occurrence: None)
  Receive Date: 20090804
  Receipt Date: 20090804
  Transmission Date: 20100115
  Serious: Yes (Disabling, Other)
  Sender: FDA-Public Use
  Company Number: None

PATIENT
  Sex: Female
  Weight: 87.5442 kg

DRUGS (2)
  1. ZICAM - ZICAM ZICAM, LLC [Suspect]
     Indication: INFLUENZA
     Dosage: 1 SWAB EVERY 4 HOURS NOSE
     Route: 045
     Dates: start: 20081218, end: 20081221
  2. ZICAM - ZICAM ZICAM, LLC [Suspect]
     Indication: SINUS DISORDER
     Dosage: 1 SWAB EVERY 4 HOURS NOSE
     Route: 045
     Dates: start: 20081218, end: 20081221

REACTIONS (2)
  - DYSGEUSIA [None]
  - PAROSMIA [None]
